FAERS Safety Report 13065482 (Version 1)
Quarter: 2016Q4

REPORT INFORMATION
  Report Type: Report from Study
  Country: CO (occurrence: CO)
  Receive Date: 20161227
  Receipt Date: 20161227
  Transmission Date: 20170207
  Serious: Yes (Hospitalization)
  Sender: FDA-Public Use
  Company Number: PHHY2016CO174775

PATIENT
  Sex: Male
  Weight: 69 kg

DRUGS (1)
  1. TASIGNA [Suspect]
     Active Substance: NILOTINIB
     Indication: CHRONIC MYELOID LEUKAEMIA
     Dosage: 2 DF, BID (TWO 200 MG CAPSULES EVERY 12 HOURS)
     Route: 048

REACTIONS (7)
  - Inflammation [Unknown]
  - Arthralgia [Unknown]
  - Weight decreased [Unknown]
  - Dizziness [Unknown]
  - Chronic myeloid leukaemia recurrent [Unknown]
  - Fatigue [Unknown]
  - Headache [Unknown]
